FAERS Safety Report 6096206-9 (Version None)
Quarter: 2009Q1

REPORT INFORMATION
  Report Type: 
  Country: None (occurrence: None)
  Receive Date: 20090227
  Receipt Date: 20081107
  Transmission Date: 20090719
  Serious: No
  Sender: FDA-Public Use
  Company Number: A0750286A

PATIENT
  Sex: Male

DRUGS (3)
  1. LAMICTAL [Suspect]
     Indication: BIPOLAR DISORDER
     Dosage: 450MG UNKNOWN
     Route: 048
     Dates: start: 20070101
  2. DAYTRANA [Suspect]
     Indication: ATTENTION DEFICIT/HYPERACTIVITY DISORDER
     Route: 062
     Dates: start: 20080923
  3. UNKNOWN [Concomitant]

REACTIONS (4)
  - DIZZINESS [None]
  - OVERDOSE [None]
  - VISION BLURRED [None]
  - VISUAL IMPAIRMENT [None]
